FAERS Safety Report 6441099-0 (Version None)
Quarter: 2009Q4

REPORT INFORMATION
  Report Type: 
  Country: None (occurrence: None)
  Receive Date: 20091113
  Receipt Date: 20091113
  Transmission Date: 20100525
  Serious: Yes (Other)
  Sender: FDA-Public Use
  Company Number: None

PATIENT
  Sex: Male
  Weight: 88.4514 kg

DRUGS (3)
  1. SERTRALINE HCL [Suspect]
     Indication: DEPRESSION
     Dosage: 50MG ONCE DAILY ORAL
     Route: 048
     Dates: start: 20091011
  2. SERTRALINE HCL [Suspect]
     Indication: PANIC DISORDER
     Dosage: 50MG ONCE DAILY ORAL
     Route: 048
     Dates: start: 20091011
  3. ZOLOFT [Suspect]

REACTIONS (4)
  - ABDOMINAL DISTENSION [None]
  - FLATULENCE [None]
  - NAUSEA [None]
  - PRODUCT SUBSTITUTION ISSUE [None]
